FAERS Safety Report 8163244-1 (Version None)
Quarter: 2012Q1

REPORT INFORMATION
  Report Type: 
  Country: None (occurrence: None)
  Receive Date: 20120224
  Receipt Date: 20110304
  Transmission Date: 20120608
  Serious: No
  Sender: FDA-Public Use
  Company Number: US-PFIZER INC-K201100238

PATIENT
  Age: 85 Year
  Sex: Female

DRUGS (1)
  1. FLECTOR [Suspect]
     Indication: MUSCULOSKELETAL PAIN
     Dosage: 1 PATCH, Q12H
     Route: 061
     Dates: start: 20110228, end: 20110304

REACTIONS (2)
  - PAIN [None]
  - DRUG INEFFECTIVE [None]
